FAERS Safety Report 8591154-4 (Version None)
Quarter: 2012Q3

REPORT INFORMATION
  Report Type: 
  Country: None (occurrence: None)
  Receive Date: 20120813
  Receipt Date: 20120801
  Transmission Date: 20120928
  Serious: Yes (Hospitalization)
  Sender: FDA-Public Use
  Company Number: JP-CELGENEUS-087-21660-12071456

PATIENT
  Sex: Female
  Weight: 44 kg

DRUGS (6)
  1. BETAMETHASONE SODIUM PHOSPHATE [Concomitant]
     Indication: RASH MACULO-PAPULAR
     Route: 065
     Dates: start: 20120626
  2. AZ [Concomitant]
     Dosage: 200 MILLILITER
     Route: 065
     Dates: start: 20120703
  3. PROPETO [Concomitant]
     Indication: RASH MACULO-PAPULAR
     Route: 065
     Dates: start: 20120704
  4. TS-1 [Suspect]
     Indication: GASTRIC CANCER
     Dosage: 100 MILLIGRAM
     Route: 048
     Dates: start: 20120619, end: 20120702
  5. ABRAXANE [Suspect]
     Indication: GASTRIC CANCER
     Dosage: 293 MILLIGRAM
     Route: 041
     Dates: start: 20120619, end: 20120619
  6. XYLOCAINE [Concomitant]
     Dosage: 200 MILLILITER
     Route: 065
     Dates: start: 20120703

REACTIONS (5)
  - FATIGUE [None]
  - HYPERKALAEMIA [None]
  - SEPSIS [None]
  - DECREASED APPETITE [None]
  - ENTERITIS INFECTIOUS [None]
